FAERS Safety Report 8737488 (Version 2)
Quarter: 2012Q4

REPORT INFORMATION
  Report Type: 
  Country: GB (occurrence: GB)
  Receive Date: 20120822
  Receipt Date: 20121029
  Transmission Date: 20130627
  Serious: Yes (Other)
  Sender: FDA-Public Use
  Company Number: GB-009507513-1208GBR007110

PATIENT
  Age: 69 Year
  Sex: Female

DRUGS (7)
  1. COZAAR [Suspect]
     Dosage: UNK
     Route: 048
     Dates: start: 201206
  2. COZAAR 50 MG [Suspect]
     Dosage: UNK
     Route: 048
     Dates: start: 20120619
  3. COZAAR 50 MG [Suspect]
     Dosage: UNK
     Route: 048
     Dates: start: 20120712
  4. METFORMIN [Concomitant]
  5. MOLIPAXIN [Concomitant]
  6. LORMETAZEPAM [Concomitant]
  7. EVOREL [Concomitant]

REACTIONS (3)
  - Anaphylactic shock [Unknown]
  - Migraine [Unknown]
  - Rash [Unknown]
